FAERS Safety Report 15893776 (Version 3)
Quarter: 2021Q2

REPORT INFORMATION
  Report Type: Other
  Country: CA (occurrence: CA)
  Receive Date: 20190131
  Receipt Date: 20210418
  Transmission Date: 20210716
  Serious: No
  Sender: FDA-Public Use
  Company Number: CA-ROCHE-2256776

PATIENT
  Age: 29 Year
  Sex: Male

DRUGS (3)
  1. OCREVUS [Suspect]
     Active Substance: OCRELIZUMAB
     Indication: RELAPSING-REMITTING MULTIPLE SCLEROSIS
     Dosage: 300 MG AT DAY 0 AND 14, THEN 600 MG EVERY 6 MONTHS ;ONGOING: YES
     Route: 042
     Dates: start: 20180122
  2. PREGABALIN. [Concomitant]
     Active Substance: PREGABALIN
  3. RANITIDINE. [Concomitant]
     Active Substance: RANITIDINE

REACTIONS (2)
  - Nasopharyngitis [Recovering/Resolving]
  - Night sweats [Recovering/Resolving]

NARRATIVE: CASE EVENT DATE: 201901
